FAERS Safety Report 8683329 (Version 2)
Quarter: 2012Q4

REPORT INFORMATION
  Report Type: 
  Country: DE (occurrence: DE)
  Receive Date: 20120726
  Receipt Date: 20120912
  Transmission Date: 20130627
  Serious: Yes (Hospitalization, Other)
  Sender: FDA-Public Use
  Company Number: DE-PAR PHARMACEUTICAL, INC-2012SCPR004510

PATIENT

DRUGS (11)
  1. RISPERIDONE [Suspect]
     Indication: PRODUCT USED FOR UNKNOWN INDICATION
     Dosage: 0.25 mg, tid
     Route: 065
  2. RISPERIDONE [Suspect]
     Dosage: 0.25 mg, bid
     Route: 065
     Dates: end: 201107
  3. RISPERIDONE [Suspect]
     Dosage: 0.5 mg 1 tablet (after morning meal) and 1 mg tablet evening
     Route: 065
  4. MEMANTINE [Concomitant]
     Indication: PRODUCT USED FOR UNKNOWN INDICATION
     Dosage: 20 mg, OD (1 tablet after morning meal)
     Route: 065
  5. ACETYLSALICYLIC ACID [Concomitant]
     Indication: PRODUCT USED FOR UNKNOWN INDICATION
     Dosage: 100 mg (1 tablet after morning meal), OD
     Route: 065
  6. DIGITOXIN [Concomitant]
     Indication: PRODUCT USED FOR UNKNOWN INDICATION
     Dosage: 0.07 mg, OD  (from Monday to Friday, stopped on week-end) (1 tablet after morning meal)
     Route: 065
  7. METOPROLOL SUCCINATE [Concomitant]
     Indication: PRODUCT USED FOR UNKNOWN INDICATION
     Dosage: 47.5 mg, OD
     Route: 065
  8. METOPROLOL SUCCINATE [Concomitant]
     Dosage: 23.75 mg, OD
     Route: 065
  9. TORASEMIDE [Concomitant]
     Indication: PRODUCT USED FOR UNKNOWN INDICATION
     Dosage: 5 mg, OD
     Route: 065
  10. TORASEMIDE [Concomitant]
     Dosage: 2.5 mg, OD (1/2 tablet after morning meal)
     Route: 065
  11. DORZOLAMIDE [Concomitant]
     Indication: PRODUCT USED FOR UNKNOWN INDICATION
     Dosage: UNK UNK, bid
     Route: 065

REACTIONS (6)
  - Pleurothotonus [Unknown]
  - Dementia with Lewy bodies [Unknown]
  - Dementia Alzheimer^s type [Unknown]
  - Gaze palsy [Unknown]
  - Cerebrovascular disorder [Unknown]
  - Parkinsonism [Unknown]
